FAERS Safety Report 16363694 (Version 2)
Quarter: 2019Q2

REPORT INFORMATION
  Report Type: Spontaneous
  Country: HU (occurrence: HU)
  Receive Date: 20190528
  Receipt Date: 20190605
  Transmission Date: 20190711
  Serious: Yes (Other)
  Sender: FDA-Public Use
  Company Number: HU-PFIZER INC-2019219633

PATIENT

DRUGS (8)
  1. KISQALI [Suspect]
     Active Substance: RIBOCICLIB
     Indication: METASTASES TO BONE
  2. CYCLOPHOSPHAMIDE. [Suspect]
     Active Substance: CYCLOPHOSPHAMIDE
     Indication: NEOPLASM
     Dosage: UNK
     Route: 065
     Dates: start: 2013
  3. LETROZOLE. [Suspect]
     Active Substance: LETROZOLE
     Indication: NEOPLASM
     Dosage: UNK
     Route: 065
     Dates: start: 2013, end: 201803
  4. EXEMESTANE. [Suspect]
     Active Substance: EXEMESTANE
     Indication: METASTASES TO BONE
     Dosage: UNK
     Route: 065
  5. DOXORUBICIN [Suspect]
     Active Substance: DOXORUBICIN
     Indication: NEOPLASM
     Dosage: UNK
     Route: 065
     Dates: start: 2013
  6. DOCETAXEL. [Suspect]
     Active Substance: DOCETAXEL
     Indication: NEOPLASM
     Dosage: UNK
     Route: 065
     Dates: start: 2013
  7. KISQALI [Suspect]
     Active Substance: RIBOCICLIB
     Indication: METASTASES TO LIVER
     Dosage: UNK
     Route: 065
  8. EXEMESTANE. [Suspect]
     Active Substance: EXEMESTANE
     Indication: METASTASES TO LIVER

REACTIONS (4)
  - Gamma-glutamyltransferase increased [Unknown]
  - Neoplasm progression [Unknown]
  - Blood alkaline phosphatase increased [Unknown]
  - Bone pain [Recovered/Resolved]

NARRATIVE: CASE EVENT DATE: 201812
